FAERS Safety Report 7183192-3 (Version None)
Quarter: 2010Q4

REPORT INFORMATION
  Report Type: 
  Country: None (occurrence: None)
  Receive Date: 20101208
  Receipt Date: 20101123
  Transmission Date: 20110411
  Serious: Yes (Other)
  Sender: FDA-Public Use
  Company Number: 1000017019

PATIENT
  Age: 42 Year
  Sex: Female

DRUGS (7)
  1. CITALOPRAM (CITALOPRAM HYDROBROMIDE) [Suspect]
     Dosage: 20 MG (20 MG, 1 IN 1 D)
  2. WELLBUTRIN [Suspect]
  3. CHONDROSULF (CHONDROITIN SULFATE SODIUM) (CHONDROITIN SULFATE SODIUM) [Concomitant]
  4. IBUPROFEN [Concomitant]
  5. ASPIRIN [Concomitant]
  6. VITAMIN MULTIVIT (MULTIVITAMIN) (MULTIVITAMIN) [Concomitant]
  7. RITALIN (METHYLPHENIDATE HYDROCHLORIDE) (METHYLPHENIDATE HYDROCHLORIDE [Concomitant]

REACTIONS (2)
  - RETINITIS [None]
  - SCOTOMA [None]
